FAERS Safety Report 8555949-5 (Version None)
Quarter: 2012Q3

REPORT INFORMATION
  Report Type: 
  Country: None (occurrence: None)
  Receive Date: 20120801
  Receipt Date: 20120727
  Transmission Date: 20120928
  Serious: No
  Sender: FDA-Public Use
  Company Number: US-009507513-1207USA011559

PATIENT

DRUGS (1)
  1. PEG-INTRON [Suspect]
     Dosage: 0.4 ML, QW
     Dates: start: 20120706

REACTIONS (3)
  - INCORRECT DOSE ADMINISTERED [None]
  - PRODUCT QUALITY ISSUE [None]
  - MALAISE [None]
